FAERS Safety Report 7581382-9 (Version None)
Quarter: 2011Q2

REPORT INFORMATION
  Report Type: 
  Country: None (occurrence: None)
  Receive Date: 20110629
  Receipt Date: 20110619
  Transmission Date: 20111010
  Serious: Yes (Hospitalization)
  Sender: FDA-Public Use
  Company Number: CN-BAXTER-2011BH018952

PATIENT
  Age: 15 Year
  Sex: Male

DRUGS (3)
  1. IFOSFAMIDE [Suspect]
     Indication: BONE SARCOMA
     Route: 041
     Dates: start: 20110604, end: 20110606
  2. IFOSFAMIDE [Suspect]
     Route: 041
     Dates: start: 20110608, end: 20110608
  3. IFOSFAMIDE [Suspect]
     Route: 041
     Dates: start: 20110601, end: 20110601

REACTIONS (2)
  - CHILLS [None]
  - PYREXIA [None]
